FAERS Safety Report 25581169 (Version 1)
Quarter: 2025Q3

REPORT INFORMATION
  Report Type: Spontaneous
  Country: US (occurrence: US)
  Receive Date: 20250718
  Receipt Date: 20250718
  Transmission Date: 20251020
  Serious: No
  Sender: NOVO NORDISK
  Company Number: US-NOVOPROD-1360094

PATIENT
  Age: 50 Year
  Sex: Female

DRUGS (1)
  1. WEGOVY [Suspect]
     Active Substance: SEMAGLUTIDE
     Indication: Weight control
     Dosage: 1.7 MG, QW
     Route: 058
     Dates: start: 202408, end: 20241111

REACTIONS (5)
  - Muscle spasms [Not Recovered/Not Resolved]
  - Feeding disorder [Not Recovered/Not Resolved]
  - Abdominal pain upper [Not Recovered/Not Resolved]
  - Diarrhoea [Not Recovered/Not Resolved]
  - Weight loss poor [Unknown]

NARRATIVE: CASE EVENT DATE: 20241111
